FAERS Safety Report 17468774 (Version 1)
Quarter: 2020Q1

REPORT INFORMATION
  Report Type: Spontaneous
  Country: US (occurrence: US)
  Receive Date: 20200217
  Receipt Date: 20200217
  Transmission Date: 20200409
  Serious: No
  Sender: FDA-Public Use
  Company Number: None

PATIENT
  Age: 46 Year
  Sex: Female

DRUGS (1)
  1. MYCOPHENOLATE 250MG ROXANE [Suspect]
     Active Substance: MYCOPHENOLATE MOFETIL
     Indication: CHRONIC INFLAMMATORY DEMYELINATING POLYRADICULONEUROPATHY
     Route: 048
     Dates: start: 20200113

REACTIONS (1)
  - Pruritus [None]

NARRATIVE: CASE EVENT DATE: 202001
